FAERS Safety Report 7772715-9 (Version None)
Quarter: 2011Q3

REPORT INFORMATION
  Report Type: 
  Country: None (occurrence: None)
  Receive Date: 20110922
  Receipt Date: 20090720
  Transmission Date: 20111222
  Serious: No
  Sender: FDA-Public Use
  Company Number: US-ASTRAZENECA-2007UW12873

PATIENT
  Age: 13702 Day
  Sex: Female
  Weight: 89.4 kg

DRUGS (8)
  1. REMERON [Concomitant]
     Dates: start: 20060109
  2. SEROQUEL [Suspect]
     Dosage: 25-600 MG
     Route: 048
     Dates: start: 20051027
  3. TRAZODONE HYDROCHLORIDE [Concomitant]
     Dosage: 100-150 MG, QHS
     Dates: start: 20060111
  4. SEROQUEL [Suspect]
     Dosage: 25 MG TID AND 100 MG QHS
     Route: 048
     Dates: start: 20060109
  5. REMERON [Concomitant]
     Dosage: 3 MG QHS, 15 MG AT BEDTIME
     Dates: start: 20051027
  6. SEROQUEL [Suspect]
     Indication: DEPRESSION
     Route: 048
     Dates: start: 20051025
  7. XANAX [Concomitant]
     Dosage: 0.25 MG 3 TIMES A DAY, 2 MG QAM
     Dates: start: 20050111
  8. CYMBALTA [Concomitant]
     Dates: start: 20051027

REACTIONS (2)
  - GESTATIONAL DIABETES [None]
  - TYPE 2 DIABETES MELLITUS [None]
